FAERS Safety Report 23812403 (Version 5)
Quarter: 2024Q3

REPORT INFORMATION
  Report Type: Report from Study
  Country: US (occurrence: US)
  Receive Date: 20240503
  Receipt Date: 20240701
  Transmission Date: 20241017
  Serious: Yes (Other)
  Sender: JAZZ
  Company Number: US-JAZZ PHARMACEUTICALS-2022-US-027392

PATIENT
  Age: 32 Year
  Sex: Male

DRUGS (27)
  1. XYWAV [Suspect]
     Active Substance: CALCIUM OXYBATE\MAGNESIUM OXYBATE\POTASSIUM OXYBATE\SODIUM OXYBATE
     Indication: Hypersomnia
     Dosage: 2 GRAM, BID
  2. XYWAV [Suspect]
     Active Substance: CALCIUM OXYBATE\MAGNESIUM OXYBATE\POTASSIUM OXYBATE\SODIUM OXYBATE
     Indication: Cataplexy
     Dosage: 3 GRAM
  3. XYWAV [Suspect]
     Active Substance: CALCIUM OXYBATE\MAGNESIUM OXYBATE\POTASSIUM OXYBATE\SODIUM OXYBATE
     Dosage: 4.5 GRAM, BID
  4. XYWAV [Suspect]
     Active Substance: CALCIUM OXYBATE\MAGNESIUM OXYBATE\POTASSIUM OXYBATE\SODIUM OXYBATE
     Dosage: 5 GRAM FIRST DOSE AND 3 GRAM SECOND DOSE
  5. XYWAV [Suspect]
     Active Substance: CALCIUM OXYBATE\MAGNESIUM OXYBATE\POTASSIUM OXYBATE\SODIUM OXYBATE
     Dosage: 4.25 GRAM FIRST DOSE AND 2.75 GRAM SECOND DOSE
  6. XYWAV [Suspect]
     Active Substance: CALCIUM OXYBATE\MAGNESIUM OXYBATE\POTASSIUM OXYBATE\SODIUM OXYBATE
     Dosage: 5 GRAM FIRST DOSE AND 3 GRAM SECOND DOSE
  7. XYWAV [Suspect]
     Active Substance: CALCIUM OXYBATE\MAGNESIUM OXYBATE\POTASSIUM OXYBATE\SODIUM OXYBATE
     Dosage: UNK (6 ML AT BEDTIME AND 2.5 TO 4 HOURS LATER)
     Route: 048
     Dates: start: 20240328
  8. XYWAV [Suspect]
     Active Substance: CALCIUM OXYBATE\MAGNESIUM OXYBATE\POTASSIUM OXYBATE\SODIUM OXYBATE
     Dosage: 5 GRAM THEN 4 GRAM
     Route: 048
     Dates: start: 20220815, end: 20230301
  9. XYWAV [Suspect]
     Active Substance: CALCIUM OXYBATE\MAGNESIUM OXYBATE\POTASSIUM OXYBATE\SODIUM OXYBATE
     Dosage: 3G 1ST DOES AND 1.5 G 2ND DOSE
     Dates: start: 20240416
  10. XYWAV [Suspect]
     Active Substance: CALCIUM OXYBATE\MAGNESIUM OXYBATE\POTASSIUM OXYBATE\SODIUM OXYBATE
     Dosage: 6 GRAM
  11. XYWAV [Suspect]
     Active Substance: CALCIUM OXYBATE\MAGNESIUM OXYBATE\POTASSIUM OXYBATE\SODIUM OXYBATE
     Dosage: FIRST DOSE 5G AND SECOND DOSE 2.75G
     Route: 048
     Dates: start: 20240416
  12. CITALOPRAM [Suspect]
     Active Substance: CITALOPRAM\CITALOPRAM HYDROBROMIDE
     Indication: Product used for unknown indication
  13. MIRTAZAPINE [Suspect]
     Active Substance: MIRTAZAPINE
     Indication: Product used for unknown indication
  14. MELOXICAM [Suspect]
     Active Substance: MELOXICAM
     Indication: Product used for unknown indication
  15. BOTOX [Suspect]
     Active Substance: ONABOTULINUMTOXINA
     Indication: Product used for unknown indication
  16. ALCOHOL [Suspect]
     Active Substance: ALCOHOL
     Indication: Product used for unknown indication
  17. VYVANSE [Suspect]
     Active Substance: LISDEXAMFETAMINE DIMESYLATE
     Indication: Product used for unknown indication
  18. AUGMENTIN [Concomitant]
     Active Substance: AMOXICILLIN\CLAVULANATE POTASSIUM
     Indication: Product used for unknown indication
     Dosage: AUGMENTIN 875/125 TWICE  DAILY FOR 10 DAYS
     Dates: start: 20220831
  19. PROMETHAZINE [Concomitant]
     Active Substance: PROMETHAZINE HYDROCHLORIDE
     Dosage: UNK
     Dates: start: 20230109
  20. VITAMINS [Concomitant]
     Active Substance: VITAMINS
     Dosage: UNK
     Dates: start: 20230111
  21. LIDOCAINE HYDROCHLORIDE [Concomitant]
     Active Substance: LIDOCAINE HYDROCHLORIDE
     Dosage: VIAL
     Dates: start: 20230118
  22. ALIGN [Concomitant]
     Active Substance: BIFIDOBACTERIUM LONGUM SUBSP. INFANTIS
     Dosage: UNK
     Dates: start: 20230104
  23. ALIGN [Concomitant]
     Active Substance: BIFIDOBACTERIUM LONGUM SUBSP. INFANTIS
     Dosage: UNK
     Dates: start: 20240514
  24. CICLOPIROX [CICLOPIROX OLAMINE] [Concomitant]
     Dosage: UNK
     Dates: start: 20230118
  25. CIPROFLOXACIN HYDROCHLORIDE [Concomitant]
     Active Substance: CIPROFLOXACIN HYDROCHLORIDE
     Dosage: UNK
     Dates: start: 20240514
  26. OXYBUTYNIN CHLORIDE [Concomitant]
     Active Substance: OXYBUTYNIN CHLORIDE
     Dosage: UNK
     Dates: start: 20240517
  27. ZOLOFT [Concomitant]
     Active Substance: SERTRALINE HYDROCHLORIDE
     Dosage: UNK
     Dates: start: 20240508

REACTIONS (37)
  - Aspiration [Unknown]
  - Dyspnoea [Recovered/Resolved]
  - Intervertebral disc protrusion [Unknown]
  - Back pain [Recovered/Resolved]
  - Muscle spasms [Unknown]
  - Seasonal affective disorder [Unknown]
  - Social anxiety disorder [Unknown]
  - Anxiety [Unknown]
  - Hunger [Unknown]
  - Benign prostatic hyperplasia [Unknown]
  - Feeling abnormal [Unknown]
  - Stenosis [Unknown]
  - Condition aggravated [Unknown]
  - Depression [Unknown]
  - Vitamin D deficiency [Unknown]
  - Musculoskeletal discomfort [Unknown]
  - Nausea [Not Recovered/Not Resolved]
  - Arthritis [Unknown]
  - Hepatic enzyme increased [Recovered/Resolved]
  - Illness [Unknown]
  - Abdominal pain upper [Unknown]
  - Peripheral swelling [Unknown]
  - Nasopharyngitis [Unknown]
  - Heart rate increased [Unknown]
  - Road traffic accident [Unknown]
  - Migraine [Unknown]
  - Enuresis [Unknown]
  - Micturition urgency [Unknown]
  - Gastrooesophageal reflux disease [Unknown]
  - Asthenia [Not Recovered/Not Resolved]
  - Nervousness [Unknown]
  - Fatigue [Not Recovered/Not Resolved]
  - Somnolence [Not Recovered/Not Resolved]
  - Contraindicated product administered [Unknown]
  - Therapeutic product effect variable [Unknown]
  - Product administration interrupted [Unknown]
  - Incorrect dose administered [Unknown]

NARRATIVE: CASE EVENT DATE: 20200529
